FAERS Safety Report 15723142 (Version 1)
Quarter: 2018Q4

REPORT INFORMATION
  Report Type: Spontaneous
  Country: NL (occurrence: NL)
  Receive Date: 20181214
  Receipt Date: 20181214
  Transmission Date: 20190205
  Serious: Yes (Life-Threatening, Hospitalization, Disabling)
  Sender: FDA-Public Use
  Company Number: NL-BAYER-2018-226560

PATIENT
  Age: 25 Year
  Sex: Female
  Weight: 55 kg

DRUGS (2)
  1. MIRENA [Suspect]
     Active Substance: LEVONORGESTREL
     Indication: CONTRACEPTION
     Dosage: 1 DF, UNK
  2. MIRENA [Suspect]
     Active Substance: LEVONORGESTREL
     Indication: CONTRACEPTION

REACTIONS (5)
  - Rhabdomyolysis [Unknown]
  - Skin necrosis [Unknown]
  - Disseminated intravascular coagulation [Unknown]
  - Toxic shock syndrome staphylococcal [Recovered/Resolved with Sequelae]
  - Hypoperfusion [Unknown]

NARRATIVE: CASE EVENT DATE: 20181031
